FAERS Safety Report 12804502 (Version 2)
Quarter: 2016Q4

REPORT INFORMATION
  Report Type: Spontaneous
  Country: US (occurrence: US)
  Receive Date: 20161003
  Receipt Date: 20161021
  Transmission Date: 20170207
  Serious: No
  Sender: FDA-Public Use
  Company Number: US-PFIZER INC-2016462293

PATIENT
  Sex: Male

DRUGS (4)
  1. LYRICA [Suspect]
     Active Substance: PREGABALIN
     Dosage: 200 MG, 1X/DAY
  2. LYRICA [Suspect]
     Active Substance: PREGABALIN
     Dosage: 100 MG, 1X/DAY (AT NIGHT)
  3. LYRICA [Suspect]
     Active Substance: PREGABALIN
     Indication: DIABETIC NEUROPATHY
     Dosage: 100 MG, 1X/DAY
  4. LYRICA [Suspect]
     Active Substance: PREGABALIN
     Dosage: 200 MG, 1X/DAY (2 PILL A DAY)

REACTIONS (12)
  - Vision blurred [Unknown]
  - Disturbance in attention [Unknown]
  - Personality disorder [Unknown]
  - Mood altered [Unknown]
  - Ejaculation failure [Unknown]
  - Drug effect incomplete [Unknown]
  - Erectile dysfunction [Unknown]
  - Fatigue [Unknown]
  - Cognitive disorder [Unknown]
  - Insomnia [Unknown]
  - Libido decreased [Unknown]
  - Dry eye [Unknown]
